FAERS Safety Report 4505516-5 (Version None)
Quarter: 2004Q4

REPORT INFORMATION
  Report Type: 
  Country: None (occurrence: None)
  Receive Date: 20041025
  Receipt Date: 20031211
  Transmission Date: 20050328
  Serious: Yes (Other)
  Sender: FDA-Public Use
  Company Number: US-JNJFOC-20031006443

PATIENT
  Age: 74 Year
  Sex: 0
  Weight: 77.1115 kg

DRUGS (7)
  1. REMICADE [Suspect]
     Indication: RHEUMATOID ARTHRITIS
     Dosage: 200 MG, INTRAVENOUS
     Route: 042
     Dates: start: 20031010
  2. REMICADE [Suspect]
     Indication: RHEUMATOID ARTHRITIS
     Dosage: 200 MG, INTRAVENOUS
     Route: 042
     Dates: start: 20031024
  3. REMICADE [Suspect]
  4. METHOTREXATE [Concomitant]
  5. PREDNISONE [Concomitant]
  6. NEURONTIN [Concomitant]
  7. MAXZIDE [Concomitant]

REACTIONS (9)
  - BLOOD PRESSURE DECREASED [None]
  - BLOOD PRESSURE INCREASED [None]
  - CHILLS [None]
  - DIZZINESS [None]
  - HEART RATE INCREASED [None]
  - INFUSION RELATED REACTION [None]
  - MYALGIA [None]
  - NECK PAIN [None]
  - PNEUMONITIS [None]
